FAERS Safety Report 22192810 (Version 1)
Quarter: 2023Q2

REPORT INFORMATION
  Report Type: Spontaneous
  Country: CN (occurrence: None)
  Receive Date: 20230410
  Receipt Date: 20230410
  Transmission Date: 20230722
  Serious: Yes (Life-Threatening, Hospitalization, Other)
  Sender: FDA-Public Use
  Company Number: 2023A081539

PATIENT
  Age: 16 Year
  Sex: Female
  Weight: 55 kg

DRUGS (3)
  1. QUETIAPINE [Suspect]
     Active Substance: QUETIAPINE
     Indication: Completed suicide
     Route: 048
     Dates: start: 20220603, end: 20220603
  2. NITRENDIPINE [Suspect]
     Active Substance: NITRENDIPINE
     Indication: Completed suicide
     Route: 048
     Dates: start: 20220603, end: 20220603
  3. LITHIUM CARBONATE [Suspect]
     Active Substance: LITHIUM CARBONATE
     Indication: Completed suicide
     Route: 048
     Dates: start: 20220603, end: 20220603

REACTIONS (5)
  - Suicide attempt [Unknown]
  - Dizziness [Recovering/Resolving]
  - Hypotension [Recovering/Resolving]
  - Vomiting [Unknown]
  - Fatigue [Unknown]

NARRATIVE: CASE EVENT DATE: 20220603
